FAERS Safety Report 8702169 (Version 2)
Quarter: 2013Q4

REPORT INFORMATION
  Report Type: Spontaneous
  Country: US (occurrence: US)
  Receive Date: 20120829
  Receipt Date: 20131031
  Transmission Date: 20140711
  Serious: Yes (Death)
  Sender: FDA-Public Use
  Company Number: US-009507513-85010321

PATIENT
  Age: 31 Year
  Sex: Female

DRUGS (3)
  1. ELAVIL [Suspect]
     Route: 048
  2. DORIDEN [Concomitant]
     Route: 048
  3. ALCOHOL [Concomitant]
     Route: 048

REACTIONS (1)
  - Death [Fatal]
